FAERS Safety Report 8231276-0 (Version None)
Quarter: 2012Q1

REPORT INFORMATION
  Report Type: 
  Country: None (occurrence: None)
  Receive Date: 20120320
  Receipt Date: 20120308
  Transmission Date: 20120608
  Serious: Yes (Death)
  Sender: FDA-Public Use
  Company Number: 2012SP013024

PATIENT
  Age: 34 Year
  Sex: Male
  Weight: 90 kg

DRUGS (7)
  1. NAPROSYN [Concomitant]
  2. NEORECORMON [Concomitant]
  3. ATHYRAZOL [Concomitant]
  4. REBETOL [Suspect]
     Indication: HEPATITIS C
     Dosage: 1200 MG;QD;PO
     Route: 048
     Dates: start: 20110624, end: 20111201
  5. LEKADOL [Concomitant]
  6. PEG-INTRON [Suspect]
     Indication: HEPATITIS C
     Dosage: 150 MCG;SC
     Route: 058
     Dates: start: 20110624, end: 20111201
  7. ESCITALOPRAM [Concomitant]

REACTIONS (1)
  - DEATH [None]
